FAERS Safety Report 8959110 (Version 2)
Quarter: 2013Q1

REPORT INFORMATION
  Report Type: Spontaneous
  Country: JP (occurrence: JP)
  Receive Date: 20121212
  Receipt Date: 20130123
  Transmission Date: 20140127
  Serious: Yes (Hospitalization, Other)
  Sender: FDA-Public Use
  Company Number: JP-PAR PHARMACEUTICAL, INC-2012SCPR004769

PATIENT
  Sex: 0

DRUGS (2)
  1. MINOCYCLINE HCL (WATSON LABORATORIES) [Suspect]
     Indication: DEVICE RELATED INFECTION
     Dosage: 100 MG, / DAY
     Route: 048
  2. GLIMEPIRIDE [Concomitant]
     Indication: DIABETES MELLITUS
     Dosage: 1 MG, UNKNOWN
     Route: 065

REACTIONS (2)
  - Neuropathy peripheral [Recovering/Resolving]
  - Vasculitis [Recovering/Resolving]
